FAERS Safety Report 25022198 (Version 2)
Quarter: 2025Q2

REPORT INFORMATION
  Report Type: Spontaneous
  Country: JP (occurrence: JP)
  Receive Date: 20250228
  Receipt Date: 20250407
  Transmission Date: 20250717
  Serious: Yes (Other)
  Sender: MERCK SHARP AND DOHME
  Company Number: JP-MSD-M2024-54005

PATIENT
  Age: 6 Decade
  Sex: Male

DRUGS (1)
  1. KEYTRUDA [Suspect]
     Active Substance: PEMBROLIZUMAB
     Indication: Renal cell carcinoma
     Dosage: DOSE DESCRIPTION : 200 MILLIGRAM, Q3W
     Route: 041
     Dates: start: 20241126, end: 20241126

REACTIONS (4)
  - Immune-mediated arthritis [Recovered/Resolved]
  - Sjogren^s syndrome [Unknown]
  - Polymyalgia rheumatica [Unknown]
  - Amylase increased [Recovered/Resolved]

NARRATIVE: CASE EVENT DATE: 20241204
